FAERS Safety Report 11638639 (Version 1)
Quarter: 2015Q4

REPORT INFORMATION
  Report Type: Spontaneous
  Country: US (occurrence: US)
  Receive Date: 20151016
  Receipt Date: 20151016
  Transmission Date: 20160304
  Serious: Yes (Other)
  Sender: FDA-Public Use
  Company Number: US-ABBVIE-15P-163-1479510-00

PATIENT
  Sex: Male

DRUGS (1)
  1. ANDROGEL [Suspect]
     Active Substance: TESTOSTERONE
     Indication: ANDROGEN REPLACEMENT THERAPY
     Route: 061
     Dates: start: 200406, end: 201408

REACTIONS (5)
  - Portal vein thrombosis [Unknown]
  - Intestinal ischaemia [Unknown]
  - Thrombocytopenia [Unknown]
  - Coronary artery disease [Unknown]
  - Thrombosis mesenteric vessel [Unknown]

NARRATIVE: CASE EVENT DATE: 20050830
